FAERS Safety Report 23827169 (Version 1)
Quarter: 2024Q2

REPORT INFORMATION
  Report Type: Spontaneous
  Country: US (occurrence: US)
  Receive Date: 20240507
  Receipt Date: 20240507
  Transmission Date: 20240715
  Serious: No
  Sender: FDA-Public Use
  Company Number: US-GLENMARK PHARMACEUTICALS-2024GMK088930

PATIENT

DRUGS (2)
  1. RYALTRIS [Suspect]
     Active Substance: MOMETASONE FUROATE MONOHYDRATE\OLOPATADINE HYDROCHLORIDE
     Indication: Product used for unknown indication
     Dosage: 1 DOSAGE FORM, BID, 1 SPRAY IN EACH NOSTRIL,TWICE DAILY
     Route: 045
     Dates: start: 2023
  2. RYALTRIS [Suspect]
     Active Substance: MOMETASONE FUROATE MONOHYDRATE\OLOPATADINE HYDROCHLORIDE
     Dosage: 1 DOSAGE FORM, BID, 1 SPRAY IN EACH NOSTRIL,TWICE DAILY
     Route: 045
     Dates: start: 2023

REACTIONS (3)
  - Product use issue [Unknown]
  - Device delivery system issue [Unknown]
  - Device occlusion [Unknown]
